FAERS Safety Report 8306242 (Version 2)
Quarter: 2012Q4

REPORT INFORMATION
  Report Type: 
  Country: US (occurrence: US)
  Receive Date: 20111221
  Receipt Date: 20121015
  Transmission Date: 20130627
  Serious: Yes (Other)
  Sender: FDA-Public Use
  Company Number: US-ASTRAZENECA-2011SE75283

PATIENT
  Age: 71 Year
  Sex: Male

DRUGS (3)
  1. NEXIUM [Suspect]
     Route: 048
  2. PRILOSEC [Suspect]
     Route: 048
  3. ZANTAC [Concomitant]

REACTIONS (7)
  - Sciatica [Unknown]
  - Macular hole [Unknown]
  - Arthritis [Unknown]
  - Diabetes mellitus [Unknown]
  - Blood cholesterol increased [Unknown]
  - Hypertension [Unknown]
  - Drug ineffective [Unknown]
